FAERS Safety Report 8581208-0 (Version None)
Quarter: 2012Q3

REPORT INFORMATION
  Report Type: 
  Country: None (occurrence: None)
  Receive Date: 20120809
  Receipt Date: 20120801
  Transmission Date: 20120928
  Serious: Yes (Other)
  Sender: FDA-Public Use
  Company Number: AU-JNJFOC-20120800577

PATIENT
  Sex: Female

DRUGS (8)
  1. AZATHIOPRINE SODIUM [Concomitant]
     Indication: PREMEDICATION
     Route: 048
  2. IMURAN [Concomitant]
     Indication: CROHN'S DISEASE
     Route: 065
     Dates: start: 20080101
  3. HYDROCORTISONE [Concomitant]
     Indication: PREMEDICATION
     Route: 042
     Dates: start: 20120710
  4. FEXOFENADINE [Concomitant]
     Indication: PREMEDICATION
     Route: 048
     Dates: start: 20120710
  5. REMICADE [Suspect]
     Route: 042
     Dates: start: 20120725
  6. REMICADE [Suspect]
     Indication: CROHN'S DISEASE
     Dosage: DOSE 3
     Route: 042
     Dates: start: 20110125, end: 20120710
  7. REMICADE [Suspect]
     Route: 042
  8. SULFASALAZINE [Concomitant]
     Indication: ARTHRALGIA
     Route: 065
     Dates: start: 20120201

REACTIONS (11)
  - BODY TEMPERATURE INCREASED [None]
  - FLUSHING [None]
  - VOMITING [None]
  - CHEST DISCOMFORT [None]
  - URTICARIA [None]
  - WHEEZING [None]
  - BRONCHOSPASM [None]
  - RASH [None]
  - INFUSION RELATED REACTION [None]
  - DYSPNOEA [None]
  - HYPERSENSITIVITY [None]
